FAERS Safety Report 10306063 (Version 2)
Quarter: 2014Q3

REPORT INFORMATION
  Report Type: Spontaneous
  Country: JP (occurrence: JP)
  Receive Date: 20140715
  Receipt Date: 20140806
  Transmission Date: 20150326
  Serious: Yes (Other)
  Sender: FDA-Public Use
  Company Number: JP-GLAXOSMITHKLINE-B1013130A

PATIENT
  Age: 5 Decade
  Sex: Male

DRUGS (1)
  1. LAMICTAL [Suspect]
     Active Substance: LAMOTRIGINE
     Indication: BIPOLAR DISORDER
     Dosage: 25MG PER DAY
     Route: 048

REACTIONS (2)
  - Somnolence [Not Recovered/Not Resolved]
  - Epilepsy [Not Recovered/Not Resolved]
